FAERS Safety Report 9191643 (Version 2)
Quarter: 2013Q2

REPORT INFORMATION
  Report Type: Spontaneous
  Country: US (occurrence: US)
  Receive Date: 20130326
  Receipt Date: 20130517
  Transmission Date: 20140414
  Serious: No
  Sender: FDA-Public Use
  Company Number: US-009507513-1303USA009946

PATIENT
  Age: 19 Year
  Sex: Female
  Weight: 68.93 kg

DRUGS (2)
  1. NEXPLANON [Suspect]
     Indication: CONTRACEPTION
     Dosage: UNK
     Route: 059
     Dates: start: 20130306
  2. KENALOG [Concomitant]

REACTIONS (2)
  - Implant site rash [Not Recovered/Not Resolved]
  - Rash generalised [Not Recovered/Not Resolved]
